FAERS Safety Report 9291954 (Version 1)
Quarter: 2012Q4

REPORT INFORMATION
  Report Type: Spontaneous
  Country: IT (occurrence: None)
  Receive Date: 20121031
  Receipt Date: 20121031
  Transmission Date: 20130627
  Serious: Yes (Hospitalization)
  Sender: FDA-Public Use
  Company Number: B0804241A

PATIENT
  Age: 75 Year
  Sex: Female

DRUGS (8)
  1. LAPATINIB TABLET (LAPATINIB) [Suspect]
     Indication: CHORDOMA
     Route: 048
     Dates: start: 20111226
  2. THYROXINE SODIUM [Concomitant]
  3. RAMIPRIL [Concomitant]
  4. FRUSEMIDE [Concomitant]
  5. GLIMEPIRIDE [Concomitant]
  6. BISOPROLOL [Concomitant]
  7. WARFARIN SODIUM [Concomitant]
  8. PANTOPRAZOLE [Concomitant]

REACTIONS (3)
  - Confusional state [None]
  - Metabolic encephalopathy [None]
  - Hyperammonaemia [None]
